FAERS Safety Report 6867569-9 (Version None)
Quarter: 2010Q3

REPORT INFORMATION
  Report Type: 
  Country: None (occurrence: None)
  Receive Date: 20100722
  Receipt Date: 20100722
  Transmission Date: 20110219
  Serious: Yes (Other)
  Sender: FDA-Public Use
  Company Number: None

PATIENT
  Sex: Female

DRUGS (1)
  1. FORTEO [Suspect]
     Indication: OSTEOPOROSIS
     Dosage: 20 MCG QD SQ
     Route: 058
     Dates: start: 20100212, end: 20100721

REACTIONS (1)
  - AMYOTROPHIC LATERAL SCLEROSIS [None]
